FAERS Safety Report 9858468 (Version 1)
Quarter: 2014Q1

REPORT INFORMATION
  Report Type: Spontaneous
  Country: AT (occurrence: None)
  Receive Date: 20140129
  Receipt Date: 20140129
  Transmission Date: 20141002
  Serious: Yes (Other)
  Sender: FDA-Public Use
  Company Number: 2014-AT-000264

PATIENT
  Sex: 0

DRUGS (1)
  1. ERWINASE [Suspect]

REACTIONS (1)
  - Thrombosis [None]
